FAERS Safety Report 8273501-6 (Version None)
Quarter: 2012Q2

REPORT INFORMATION
  Report Type: 
  Country: None (occurrence: None)
  Receive Date: 20120411
  Receipt Date: 20120406
  Transmission Date: 20120825
  Serious: Yes (Other)
  Sender: FDA-Public Use
  Company Number: JP-SANOFI-AVENTIS-2012SA024673

PATIENT
  Age: 21 Year
  Sex: Female

DRUGS (3)
  1. BETAMETHASONE [Concomitant]
     Route: 048
  2. ALLEGRA [Suspect]
     Dosage: DOSE:120 MG DIVIDED INTO TWO DOSES
     Route: 048
  3. ALLEGRA [Suspect]
     Dosage: DOSE:120 MG DIVIDED INTO TWO DOSES
     Route: 048

REACTIONS (1)
  - PROTEIN URINE PRESENT [None]
